FAERS Safety Report 16874883 (Version 1)
Quarter: 2019Q4

REPORT INFORMATION
  Report Type: Spontaneous
  Country: US (occurrence: US)
  Receive Date: 20191001
  Receipt Date: 20191001
  Transmission Date: 20200122
  Serious: No
  Sender: FDA-Public Use
  Company Number: US-MISSION PHARMACAL COMPANY-2075155

PATIENT
  Age: 71 Year
  Sex: Male

DRUGS (1)
  1. LITHOSTAT [Suspect]
     Active Substance: ACETOHYDROXAMIC ACID
     Indication: CALCINOSIS
     Route: 048
     Dates: start: 20190922, end: 20190923

REACTIONS (1)
  - Headache [Recovered/Resolved]
